FAERS Safety Report 5566281-6 (Version None)
Quarter: 2007Q4

REPORT INFORMATION
  Report Type: 
  Country: None (occurrence: None)
  Receive Date: 20071219
  Receipt Date: 20071211
  Transmission Date: 20080405
  Serious: Yes (Other)
  Sender: FDA-Public Use
  Company Number: JP-BAYER-200711002BYL

PATIENT
  Sex: Female
  Weight: 0.8 kg

DRUGS (2)
  1. ASPIRIN [Suspect]
     Indication: PROTEIN S DEFICIENCY
     Route: 064
  2. HEPARIN [Suspect]
     Indication: PROTEIN S DEFICIENCY
     Route: 064

REACTIONS (3)
  - ARTIFICIAL ANUS [None]
  - MECONIUM PLUG SYNDROME [None]
  - SHORT-BOWEL SYNDROME [None]
